FAERS Safety Report 5391696-9 (Version None)
Quarter: 2007Q3

REPORT INFORMATION
  Report Type: 
  Country: None (occurrence: None)
  Receive Date: 20070717
  Receipt Date: 20070703
  Transmission Date: 20080115
  Serious: Yes (Death, Life-Threatening, Hospitalization)
  Sender: FDA-Public Use
  Company Number: 2007P1000340

PATIENT
  Age: 51 Year
  Sex: Female

DRUGS (5)
  1. BUSULFAN [Suspect]
     Indication: STEM CELL TRANSPLANT
     Dosage: 26.68 ML;QD;IV
     Route: 042
     Dates: start: 20070321, end: 20070324
  2. VALPROATE SODIUM [Concomitant]
  3. CYCLOPHOSPHAMIDE [Concomitant]
  4. METHOTREXATE [Concomitant]
  5. CYCLOSPORINE [Concomitant]

REACTIONS (12)
  - ACUTE MYELOID LEUKAEMIA [None]
  - BLOOD PRESSURE DECREASED [None]
  - BONE MARROW TRANSPLANT REJECTION [None]
  - CARDIAC ARREST [None]
  - CONDITION AGGRAVATED [None]
  - DIARRHOEA [None]
  - GENERALISED OEDEMA [None]
  - RESPIRATORY ARREST [None]
  - SEPSIS [None]
  - STOMATITIS [None]
  - VENOOCCLUSIVE LIVER DISEASE [None]
  - WEIGHT INCREASED [None]
